FAERS Safety Report 24066392 (Version 1)
Quarter: 2024Q3

REPORT INFORMATION
  Report Type: Spontaneous
  Country: PL (occurrence: PL)
  Receive Date: 20240709
  Receipt Date: 20240709
  Transmission Date: 20241017
  Serious: Yes (Other)
  Sender: BAUSCH AND LOMB
  Company Number: PL-JNJFOC-20240677307

PATIENT
  Age: 77 Year
  Sex: Female

DRUGS (4)
  1. DEXAMETHASONE [Suspect]
     Active Substance: DEXAMETHASONE
     Indication: Plasma cell myeloma
     Route: 065
     Dates: start: 20240525
  2. LENALIDOMIDE [Suspect]
     Active Substance: LENALIDOMIDE
     Indication: Plasma cell myeloma
     Route: 065
     Dates: start: 20240525
  3. LENALIDOMIDE [Suspect]
     Active Substance: LENALIDOMIDE
     Route: 065
     Dates: start: 20240525
  4. DARZALEX [Suspect]
     Active Substance: DARATUMUMAB
     Indication: Plasma cell myeloma
     Route: 058
     Dates: start: 20240525

REACTIONS (19)
  - Weight decreased [Unknown]
  - Neutropenia [Unknown]
  - Constipation [Unknown]
  - Diarrhoea [Unknown]
  - Cough [Unknown]
  - Asthenia [Unknown]
  - Muscle spasms [Unknown]
  - Dyspnoea [Unknown]
  - Fatigue [Unknown]
  - Back pain [Unknown]
  - Anaemia [Unknown]
  - Infection [Unknown]
  - Peripheral sensory neuropathy [Unknown]
  - Bronchitis [Unknown]
  - Pneumonia [Unknown]
  - Nausea [Unknown]
  - Oedema peripheral [Unknown]
  - Insomnia [Unknown]
  - Asthenia [Unknown]
